FAERS Safety Report 7414659-8 (Version None)
Quarter: 2011Q2

REPORT INFORMATION
  Report Type: 
  Country: None (occurrence: None)
  Receive Date: 20110414
  Receipt Date: 20110411
  Transmission Date: 20111010
  Serious: Yes (Disabling)
  Sender: FDA-Public Use
  Company Number: FR-SANOFI-AVENTIS-2011SA022160

PATIENT
  Age: 80 Year
  Sex: Female

DRUGS (6)
  1. STILNOX [Suspect]
     Indication: INSOMNIA
     Route: 048
     Dates: start: 20070101, end: 20101201
  2. TRANDATE [Concomitant]
     Route: 065
  3. SINEMET [Suspect]
     Indication: PARKINSON'S DISEASE
     Route: 048
     Dates: start: 20070101, end: 20110201
  4. XANAX [Suspect]
     Indication: ANXIETY
     Route: 048
     Dates: start: 20070101, end: 20101201
  5. KARDEGIC [Concomitant]
     Route: 065
  6. MODOPAR [Suspect]
     Indication: PARKINSON'S DISEASE
     Route: 048
     Dates: start: 20070101, end: 20110201

REACTIONS (3)
  - ANXIETY [None]
  - AGITATION [None]
  - DYSKINESIA [None]
